FAERS Safety Report 5140257-5 (Version None)
Quarter: 2006Q4

REPORT INFORMATION
  Report Type: 
  Country: None (occurrence: None)
  Receive Date: 20061026
  Receipt Date: 20061026
  Transmission Date: 20070319
  Serious: Yes (Hospitalization)
  Sender: FDA-Public Use
  Company Number: None

PATIENT
  Sex: Female
  Weight: 78.6 kg

DRUGS (14)
  1. CETUXIMAB, 250 MG/M2, BRISTOL MYERS SQUIBB [Suspect]
     Indication: CERVIX CARCINOMA
     Dosage: 445 WEEKLY IV
     Route: 042
     Dates: start: 20060831
  2. CETUXIMAB, 250MG/M2, BRISTOL MYERS SQUIBB [Suspect]
     Indication: CERVIX CARCINOMA
     Dosage: 473 WEEKLY IV
     Route: 042
     Dates: start: 20060907
  3. CETUXIMAB, 250MG/M2, BRISTOL MYERS SQUIBB [Suspect]
     Indication: CERVIX CARCINOMA
     Dosage: 473 WEEKLY IV
     Route: 042
     Dates: start: 20060914
  4. DOXYCYCLINE [Concomitant]
  5. ROSIGLITAZONE [Concomitant]
  6. DOCUSATE [Concomitant]
  7. METOCLOPRAMIDE [Concomitant]
  8. RANITIDINE [Concomitant]
  9. OXYCODONE HCL [Concomitant]
  10. REGULAR SLIDING SCALE INSULIN [Concomitant]
  11. IBUPROFEN [Concomitant]
  12. OXYCODONE (5MG)/ACETAMINOPHEN (325MG) [Concomitant]
  13. PROCHLORPERAZINE [Concomitant]
  14. LORAZEPAM [Concomitant]

REACTIONS (7)
  - BILE DUCT STENOSIS [None]
  - BILIARY SEPSIS [None]
  - CHOLANGITIS SUPPURATIVE [None]
  - DEEP VEIN THROMBOSIS [None]
  - ENTERITIS [None]
  - KLEBSIELLA SEPSIS [None]
  - LIVER FUNCTION TEST ABNORMAL [None]
